FAERS Safety Report 7488669-9 (Version None)
Quarter: 2011Q2

REPORT INFORMATION
  Report Type: 
  Country: None (occurrence: None)
  Receive Date: 20110518
  Receipt Date: 20110512
  Transmission Date: 20111010
  Serious: Yes (Hospitalization)
  Sender: FDA-Public Use
  Company Number: B0700432A

PATIENT
  Age: 26 Year
  Sex: Male

DRUGS (1)
  1. RELENZA [Suspect]
     Indication: INFLUENZA
     Route: 055

REACTIONS (5)
  - VIRAL MYOCARDITIS [None]
  - BLOOD CREATINE PHOSPHOKINASE INCREASED [None]
  - INFLUENZA [None]
  - ELECTROCARDIOGRAM ABNORMAL [None]
  - PRODUCT QUALITY ISSUE [None]
